FAERS Safety Report 13717628 (Version 1)
Quarter: 2017Q3

REPORT INFORMATION
  Report Type: Spontaneous
  Country: None (occurrence: US)
  Receive Date: 20170703
  Receipt Date: 20170703
  Transmission Date: 20171127
  Serious: No
  Sender: FDA-Public Use
  Company Number: None

PATIENT
  Age: 91 Year
  Sex: Male

DRUGS (1)
  1. SUTENT [Suspect]
     Active Substance: SUNITINIB MALATE
     Indication: RENAL CANCER
     Dosage: 25MG 14 DAYS ON, 7 DAYS OFF ORAL
     Route: 048
     Dates: start: 20161229

REACTIONS (1)
  - Arthritis infective [None]

NARRATIVE: CASE EVENT DATE: 20170601
